FAERS Safety Report 7028370-9 (Version None)
Quarter: 2010Q4

REPORT INFORMATION
  Report Type: 
  Country: None (occurrence: None)
  Receive Date: 20101005
  Receipt Date: 20100927
  Transmission Date: 20110411
  Serious: Yes (Other)
  Sender: FDA-Public Use
  Company Number: US-PFIZER INC-2010122332

PATIENT
  Sex: Female

DRUGS (10)
  1. GLUCOTROL [Suspect]
     Dosage: UNK
  2. GLIPIZIDE [Suspect]
     Dosage: UNK
  3. GABAPENTIN [Suspect]
     Dosage: UNK
  4. VERAPAMIL HCL [Suspect]
     Dosage: UNK
  5. PREDNISONE [Suspect]
     Dosage: UNK
  6. AVANDIA [Suspect]
     Dosage: UNK
  7. GLUCOPHAGE [Suspect]
     Dosage: UNK
  8. FUROSEMIDE [Suspect]
     Dosage: UNK
  9. TRAMADOL [Suspect]
     Dosage: UNK
  10. OMEPRAZOLE [Suspect]
     Dosage: UNK

REACTIONS (7)
  - BALANCE DISORDER [None]
  - DYSPNOEA [None]
  - FATIGUE [None]
  - HYPERHIDROSIS [None]
  - PALPITATIONS [None]
  - PRURITUS [None]
  - SWELLING [None]
